FAERS Safety Report 5574138-X (Version None)
Quarter: 2007Q4

REPORT INFORMATION
  Report Type: 
  Country: None (occurrence: None)
  Receive Date: 20071221
  Receipt Date: 20071210
  Transmission Date: 20080405
  Serious: Yes (Death)
  Sender: FDA-Public Use
  Company Number: 2007JP005259

PATIENT
  Age: 67 Year
  Sex: Female
  Weight: 62 kg

DRUGS (8)
  1. TACROLIMUS [Suspect]
     Indication: RHEUMATOID ARTHRITIS
     Dosage: 3 MG, UID/QD, ORAL
     Route: 048
     Dates: start: 20051201, end: 20061206
  2. PREDNISOLONE [Concomitant]
  3. INTEBAN SP (INDOMETHACIN) CAPSULE [Concomitant]
  4. CYTOTEC [Concomitant]
  5. BONALON (ALENDRONIC ACID) TABLET [Concomitant]
  6. TRYPTANOL (AMITRIPTYLINE) TABLET [Concomitant]
  7. DOGMATYL TABLET [Concomitant]
  8. SEPAZON (CLOXAZOLAM) TABLET [Concomitant]

REACTIONS (1)
  - DEATH [None]
